FAERS Safety Report 10439184 (Version 1)
Quarter: 2014Q3

REPORT INFORMATION
  Report Type: Spontaneous
  Country: US (occurrence: US)
  Receive Date: 20140908
  Receipt Date: 20140908
  Transmission Date: 20150326
  Serious: Yes (Other)
  Sender: FDA-Public Use
  Company Number: US-ACTAVIS-2014-19336

PATIENT

DRUGS (1)
  1. CRINONE [Suspect]
     Active Substance: PROGESTERONE
     Indication: PRODUCT USED FOR UNKNOWN INDICATION
     Dosage: UNK UNK, UNKNOWN
     Route: 067

REACTIONS (4)
  - Urinary retention [Unknown]
  - Vulvovaginal erythema [Unknown]
  - Vulvovaginal discomfort [Unknown]
  - Cervix disorder [Recovered/Resolved]
